FAERS Safety Report 23414151 (Version 1)
Quarter: 2024Q1

REPORT INFORMATION
  Report Type: Spontaneous
  Country: CA (occurrence: CA)
  Receive Date: 20240117
  Receipt Date: 20240117
  Transmission Date: 20240409
  Serious: Yes (Life-Threatening, Other)
  Sender: FDA-Public Use
  Company Number: CA-HALEON-CACH2024AMR002375

PATIENT

DRUGS (3)
  1. IBUPROFEN [Suspect]
     Active Substance: IBUPROFEN
     Indication: Product used for unknown indication
     Dosage: UNK
     Route: 065
  2. IBUPROFEN [Suspect]
     Active Substance: IBUPROFEN
     Indication: Drug provocation test
  3. ASPIRIN [Suspect]
     Active Substance: ASPIRIN
     Indication: Drug provocation test
     Dosage: UNK
     Route: 048

REACTIONS (1)
  - Anaphylactic reaction [Recovered/Resolved]
